FAERS Safety Report 4759187-3 (Version None)
Quarter: 2005Q3

REPORT INFORMATION
  Report Type: 
  Country: None (occurrence: None)
  Receive Date: 20050831
  Receipt Date: 20050818
  Transmission Date: 20060218
  Serious: Yes (Death)
  Sender: FDA-Public Use
  Company Number: 050826-0000717

PATIENT
  Age: 31 Year
  Sex: Male

DRUGS (1)
  1. METHAMPHETAMINE HCL [Suspect]
     Indication: DRUG ABUSER
     Dosage: UNKNOWN, TIW; IV
     Route: 042

REACTIONS (8)
  - BRAIN OEDEMA [None]
  - CARDIAC DISORDER [None]
  - CARDIOMEGALY [None]
  - CEREBELLAR HAEMORRHAGE [None]
  - COMA [None]
  - CORONARY ARTERY DISEASE [None]
  - DRUG ABUSER [None]
  - LUNG DISORDER [None]
